FAERS Safety Report 6535786-3 (Version None)
Quarter: 2010Q1

REPORT INFORMATION
  Report Type: 
  Country: None (occurrence: None)
  Receive Date: 20100113
  Receipt Date: 20100107
  Transmission Date: 20100710
  Serious: Yes (Other)
  Sender: FDA-Public Use
  Company Number: US-GENENTECH-289178

PATIENT
  Sex: Female

DRUGS (13)
  1. XOLAIR [Suspect]
     Indication: ASTHMA
     Dosage: 225 MG, Q2W
     Route: 058
     Dates: start: 20050906
  2. ASPIRIN [Concomitant]
     Indication: DRUG USE FOR UNKNOWN INDICATION
  3. CALCIUM [Concomitant]
     Indication: DRUG USE FOR UNKNOWN INDICATION
  4. LEVOTHYROXINE SODIUM [Concomitant]
     Indication: DRUG USE FOR UNKNOWN INDICATION
  5. HERBAL [Concomitant]
     Indication: DRUG USE FOR UNKNOWN INDICATION
  6. XOPENEX [Concomitant]
     Indication: DYSPNOEA
     Dosage: UNK
     Dates: start: 20071101
  7. PULMICORT [Concomitant]
     Indication: ASTHMA
     Dosage: 2 PUFF, QD
     Dates: start: 20080304, end: 20080801
  8. SYMBICORT [Concomitant]
     Indication: DYSPNOEA
     Dosage: 2 PUFF, BID
     Dates: start: 20081010, end: 20081201
  9. SPIRIVA [Concomitant]
     Indication: COUGH
     Dosage: UNK
     Dates: start: 20080901
  10. ALBUTEROL [Concomitant]
     Indication: ASTHMA
     Dosage: 2 PUFF, PRN
     Dates: start: 20050325
  11. ASTELIN [Concomitant]
     Indication: RHINITIS ALLERGIC
     Dosage: UNK
     Dates: start: 20061207, end: 20081201
  12. NASACORT AQ [Concomitant]
     Indication: RHINITIS ALLERGIC
     Dosage: UNK
     Dates: start: 20050601, end: 20081201
  13. ZYRTEC [Concomitant]
     Indication: RHINITIS ALLERGIC
     Dosage: 1 TABLET, PRN
     Route: 048
     Dates: start: 20061207

REACTIONS (3)
  - BRONCHITIS [None]
  - DRUG INEFFECTIVE [None]
  - DYSPNOEA [None]
